FAERS Safety Report 14113628 (Version 1)
Quarter: 2017Q4

REPORT INFORMATION
  Report Type: Spontaneous
  Country: US (occurrence: US)
  Receive Date: 20171023
  Receipt Date: 20171023
  Transmission Date: 20180321
  Serious: No
  Sender: FDA-Public Use
  Company Number: US-ASTRAZENECA-2017SF06585

PATIENT
  Age: 67 Year
  Sex: Female
  Weight: 83.9 kg

DRUGS (3)
  1. MONTELUKAST [Concomitant]
     Active Substance: MONTELUKAST SODIUM
     Indication: EOSINOPHIL COUNT ABNORMAL
     Route: 048
     Dates: start: 2014
  2. VITAMIN D3 [Concomitant]
     Active Substance: CHOLECALCIFEROL
     Indication: VITAMIN D DECREASED
     Route: 048
     Dates: start: 2014
  3. SYMBICORT [Suspect]
     Active Substance: BUDESONIDE\FORMOTEROL FUMARATE DIHYDRATE
     Indication: ASTHMA
     Dosage: 160/4.5 MCG 2 INHALATIONS TWICE A DAY
     Route: 055

REACTIONS (13)
  - Lung disorder [Unknown]
  - Polyp [Not Recovered/Not Resolved]
  - Product taste abnormal [Unknown]
  - Eosinophil count abnormal [Unknown]
  - Dyspnoea [Recovered/Resolved]
  - Feeling abnormal [Unknown]
  - Hypersensitivity [Unknown]
  - Pain [Unknown]
  - Wrong technique in product usage process [Unknown]
  - Vitamin D decreased [Unknown]
  - Productive cough [Unknown]
  - Cardiac stress test abnormal [Unknown]
  - Bronchial disorder [Unknown]

NARRATIVE: CASE EVENT DATE: 2014
